FAERS Safety Report 19605956 (Version 1)
Quarter: 2021Q3

REPORT INFORMATION
  Report Type: Other
  Country: CA (occurrence: CA)
  Receive Date: 20210723
  Receipt Date: 20210723
  Transmission Date: 20211014
  Serious: Yes (Other)
  Sender: FDA-Public Use
  Company Number: CA-ROCHE-2869170

PATIENT
  Age: 20 Year
  Sex: Female

DRUGS (2)
  1. MYCOPHENOLATE MOFETIL. [Suspect]
     Active Substance: MYCOPHENOLATE MOFETIL
     Indication: HYPOPHYSITIS
     Route: 065
  2. AZATHIOPRINE. [Suspect]
     Active Substance: AZATHIOPRINE
     Indication: HYPOPHYSITIS
     Route: 065

REACTIONS (6)
  - Pituitary-dependent Cushing^s syndrome [Unknown]
  - Off label use [Unknown]
  - Hypopituitarism [Unknown]
  - Diabetes insipidus [Unknown]
  - Hepatitis [Unknown]
  - Hyperglycaemia [Unknown]
